FAERS Safety Report 9289117 (Version 7)
Quarter: 2014Q1

REPORT INFORMATION
  Report Type: Spontaneous
  Country: US (occurrence: US)
  Receive Date: 20130514
  Receipt Date: 20140327
  Transmission Date: 20141002
  Serious: Yes (Hospitalization)
  Sender: FDA-Public Use
  Company Number: US-BAYER-2013-057306

PATIENT
  Age: 34 Year
  Sex: Female

DRUGS (8)
  1. BAYER EXTRA STRENGTH BACK + BODY PAIN [Suspect]
     Indication: BACK PAIN
     Dosage: 2 DF, OTHER FREQUENCY
     Route: 048
     Dates: start: 20130410, end: 20130412
  2. BAYER EXTRA STRENGTH BACK + BODY PAIN [Suspect]
     Indication: MUSCULOSKELETAL PAIN
     Dosage: 6 TO 16 PILLS A DAY
  3. IBUPROFEN [Concomitant]
     Indication: BACK PAIN
     Dosage: UNK UNK, PRN
     Route: 048
  4. NORCO [Concomitant]
     Indication: PAIN
     Dosage: 1 DF, Q4HR
     Route: 048
  5. ALPRAZOLAM [Concomitant]
     Indication: ANXIETY
     Dosage: 0.5 MG, BID
     Route: 048
  6. KETOPROFEN [Concomitant]
     Indication: PAIN
     Dosage: 75 MG, TID
     Route: 048
  7. LAMOTRIGINE [Concomitant]
  8. HYDROCODONE [Concomitant]
     Indication: PAIN

REACTIONS (14)
  - Gastric haemorrhage [Unknown]
  - Vomiting [Recovered/Resolved]
  - Abdominal pain [Not Recovered/Not Resolved]
  - Expired drug administered [None]
  - Abdominal distension [Not Recovered/Not Resolved]
  - Gastrooesophageal reflux disease [Not Recovered/Not Resolved]
  - Abdominal pain upper [Not Recovered/Not Resolved]
  - Renal disorder [None]
  - Gastrointestinal disorder [None]
  - Liver disorder [None]
  - Overdose [None]
  - Toxicity to various agents [None]
  - Tinnitus [None]
  - Nausea [None]
